FAERS Safety Report 17454610 (Version 2)
Quarter: 2020Q2

REPORT INFORMATION
  Report Type: Report from Study
  Country: IE (occurrence: IE)
  Receive Date: 20200225
  Receipt Date: 20200518
  Transmission Date: 20200713
  Serious: Yes (Other)
  Sender: FDA-Public Use
  Company Number: IE-BRISTOL-MYERS SQUIBB COMPANY-BMS-2020-013523

PATIENT
  Sex: Female

DRUGS (1)
  1. ABATACEPT [Suspect]
     Active Substance: ABATACEPT
     Indication: RHEUMATOID ARTHRITIS
     Dosage: 125 MILLIGRAM
     Route: 058
     Dates: start: 201907

REACTIONS (6)
  - Influenza [Unknown]
  - Abdominal pain upper [Unknown]
  - Chest pain [Unknown]
  - Vomiting [Unknown]
  - Limb mass [Unknown]
  - Haemoptysis [Unknown]
